FAERS Safety Report 19259586 (Version 1)
Quarter: 2021Q2

REPORT INFORMATION
  Report Type: Spontaneous
  Country: PG (occurrence: PG)
  Receive Date: 20210514
  Receipt Date: 20210514
  Transmission Date: 20210717
  Serious: Yes (Other)
  Sender: FDA-Public Use
  Company Number: PG-POPULATION COUNCIL-2020TPC000007

PATIENT
  Age: 35 Year
  Sex: Female

DRUGS (1)
  1. JADELLE [Suspect]
     Active Substance: LEVONORGESTREL
     Indication: PRODUCT USED FOR UNKNOWN INDICATION
     Route: 058
     Dates: start: 20200715, end: 20200811

REACTIONS (2)
  - Pregnancy on contraceptive [Recovered/Resolved]
  - Drug ineffective [Unknown]
